FAERS Safety Report 19428304 (Version 1)
Quarter: 2021Q2

REPORT INFORMATION
  Report Type: Spontaneous
  Country: US (occurrence: US)
  Receive Date: 20210617
  Receipt Date: 20210617
  Transmission Date: 20210717
  Serious: Yes (Death, Other)
  Sender: FDA-Public Use
  Company Number: US-ROCHE-2849923

PATIENT
  Age: 52 Year
  Sex: Male

DRUGS (1)
  1. RITUXAN [Suspect]
     Active Substance: RITUXIMAB
     Indication: GRANULOMATOSIS WITH POLYANGIITIS
     Route: 041

REACTIONS (6)
  - Epistaxis [Fatal]
  - Septic shock [Fatal]
  - Febrile neutropenia [Fatal]
  - Off label use [Unknown]
  - Pancytopenia [Fatal]
  - Angiocentric lymphoma [Unknown]
